FAERS Safety Report 11343795 (Version 2)
Quarter: 2015Q3

REPORT INFORMATION
  Report Type: Spontaneous
  Country: ES (occurrence: ES)
  Receive Date: 20150806
  Receipt Date: 20150806
  Transmission Date: 20151125
  Serious: Yes (Life-Threatening)
  Sender: FDA-Public Use
  Company Number: PHHY2015ES094389

PATIENT
  Age: 86 Year
  Sex: Female
  Weight: 50 kg

DRUGS (6)
  1. PROMETAX [Suspect]
     Active Substance: RIVASTIGMINE
     Indication: FRONTOTEMPORAL DEMENTIA
     Dosage: 4.6 MG, QD
     Route: 062
     Dates: start: 20150514
  2. SOMAZINA [Suspect]
     Active Substance: CITICOLINE
     Indication: FRONTOTEMPORAL DEMENTIA
     Dosage: 1 DF, (01 SACHET IN THE MORNING)
     Route: 048
     Dates: start: 20100811
  3. DISTRANEURINE [Suspect]
     Active Substance: CLOMETHIAZOLE
     Indication: FRONTOTEMPORAL DEMENTIA
     Dosage: UNK, 1 CAPSULE IN THE MORNING AND 2 CAPSULES DURING NIGHT
     Route: 048
     Dates: start: 20150518
  4. HALOPERIDOL. [Suspect]
     Active Substance: HALOPERIDOL
     Indication: FRONTOTEMPORAL DEMENTIA
     Dosage: 18 DRP,  (03 DROPS IN THE MORNING AND 15 DROPS IN THE NIGHT)
     Route: 048
     Dates: start: 20150518
  5. PARACETAMOL [Suspect]
     Active Substance: ACETAMINOPHEN
     Indication: PRODUCT USED FOR UNKNOWN INDICATION
     Dosage: 1 G, UNK
     Route: 048
     Dates: start: 20150518
  6. AMOXICILLINE//AMOXICILLIN SODIUM [Concomitant]
     Indication: RESPIRATORY TRACT INFECTION
     Dosage: 500 MG, TID
     Route: 048
     Dates: start: 2015

REACTIONS (8)
  - Fall [Not Recovered/Not Resolved]
  - Confusional state [Not Recovered/Not Resolved]
  - Agitation [Not Recovered/Not Resolved]
  - Asthenia [Not Recovered/Not Resolved]
  - Oedema peripheral [Not Recovered/Not Resolved]
  - Weight decreased [Not Recovered/Not Resolved]
  - Respiratory distress [Not Recovered/Not Resolved]
  - Dizziness [Not Recovered/Not Resolved]

NARRATIVE: CASE EVENT DATE: 20150606
